FAERS Safety Report 15570199 (Version 1)
Quarter: 2018Q4

REPORT INFORMATION
  Report Type: Spontaneous
  Country: US (occurrence: US)
  Receive Date: 20181031
  Receipt Date: 20181031
  Transmission Date: 20190205
  Serious: No
  Sender: FDA-Public Use
  Company Number: US-BAYER-2018-200852

PATIENT
  Age: 37 Year
  Sex: Female

DRUGS (1)
  1. SKYLA [Suspect]
     Active Substance: LEVONORGESTREL
     Dosage: DAILY DOSE 14 ?G
     Route: 015
     Dates: start: 20160921, end: 20171211

REACTIONS (1)
  - Device expulsion [None]

NARRATIVE: CASE EVENT DATE: 20171211
